FAERS Safety Report 4550508-3 (Version None)
Quarter: 2004Q4

REPORT INFORMATION
  Report Type: 
  Country: None (occurrence: None)
  Receive Date: 20041227
  Receipt Date: 20041116
  Transmission Date: 20050328
  Serious: No
  Sender: FDA-Public Use
  Company Number: 04P-163-0280736-00

PATIENT
  Age: 44 Year
  Sex: Female
  Weight: 68.0396 kg

DRUGS (9)
  1. HUMIRA [Suspect]
     Indication: RHEUMATOID ARTHRITIS
     Dosage: 40 MG, 1 IN 2 WK, SUBCUTANEOUS
     Route: 058
     Dates: start: 20040801, end: 20040901
  2. METHOTREXATE [Concomitant]
  3. SULFASALAZINE [Concomitant]
  4. PANTOPRAZOLE [Concomitant]
  5. FLUCONAZOLE [Concomitant]
  6. NYSTATIN [Concomitant]
  7. CLOTRIMAZOLE [Concomitant]
  8. ZYRTEC-D 12 HOUR [Concomitant]
  9. CETIRIZINE HCL [Concomitant]

REACTIONS (4)
  - BLOOD MAGNESIUM INCREASED [None]
  - INFLAMMATION [None]
  - INJECTION SITE BURNING [None]
  - UNEVALUABLE EVENT [None]
